FAERS Safety Report 25953302 (Version 1)
Quarter: 2025Q4

REPORT INFORMATION
  Report Type: Spontaneous
  Country: US (occurrence: US)
  Receive Date: 20251023
  Receipt Date: 20251023
  Transmission Date: 20260117
  Serious: No
  Sender: MERCK SHARP & DOHME LLC
  Company Number: US-009507513-2334957

PATIENT
  Age: 29 Year
  Sex: Female

DRUGS (12)
  1. POSACONAZOLE [Interacting]
     Active Substance: POSACONAZOLE
     Route: 048
  2. EPOETIN ALFA [Concomitant]
     Active Substance: ERYTHROPOIETIN
     Dosage: 20 000 U/DAY SC
     Route: 058
  3. EPOETIN ALFA [Concomitant]
     Active Substance: ERYTHROPOIETIN
     Dosage: 40 000 ONCE/WEEK SC
     Route: 058
  4. IRON SUCROSE [Concomitant]
     Active Substance: IRON SUCROSE
     Dosage: 100 MG/DAY ?10 D IV
     Route: 042
  5. FOLATE SODIUM [Concomitant]
     Active Substance: FOLATE SODIUM
     Dosage: 1 MG/DAY PO
     Route: 048
  6. VITAMIN B12 [Concomitant]
     Active Substance: CYANOCOBALAMIN
     Dosage: 1000 MCG/DAY SL
     Route: 060
  7. ACYCLOVIR [Concomitant]
     Active Substance: ACYCLOVIR
     Route: 048
  8. LEUPROLIDE [Concomitant]
     Active Substance: LEUPROLIDE
     Dosage: 3.75 MG ONCE PER MONTH ID
     Route: 023
  9. TRANEXAMIC ACID [Concomitant]
     Active Substance: TRANEXAMIC ACID
     Dosage: TIME INTERVAL: 0.33333333 DAYS: 1000 MG 3?/ DAY PO DURING MENSES
     Route: 048
  10. AZACITIDINE [Concomitant]
     Active Substance: AZACITIDINE
     Indication: Myeloid leukaemia
     Dosage: 300 MG/DAY IV FOR 7 DAYS
     Route: 042
  11. AZACITIDINE [Concomitant]
     Active Substance: AZACITIDINE
     Indication: Myeloid leukaemia
     Dosage: TIME INTERVAL: TOTAL: 75 MG/M2 ?7 D
     Route: 042
  12. VENETOCLAX [Interacting]
     Active Substance: VENETOCLAX
     Indication: Myeloid leukaemia
     Route: 048

REACTIONS (1)
  - Drug interaction [Unknown]
